FAERS Safety Report 5875101-1 (Version None)
Quarter: 2008Q3

REPORT INFORMATION
  Report Type: 
  Country: None (occurrence: None)
  Receive Date: 20080909
  Receipt Date: 20080903
  Transmission Date: 20090109
  Serious: Yes (Other)
  Sender: FDA-Public Use
  Company Number: A0745702A

PATIENT
  Age: 81 Year
  Sex: Male

DRUGS (2)
  1. REQUIP XL [Suspect]
     Indication: RESTLESS LEGS SYNDROME
     Dosage: 2MG PER DAY
     Route: 048
     Dates: start: 20080803, end: 20080804
  2. XALATAN [Concomitant]

REACTIONS (16)
  - ASTHENIA [None]
  - BREAST PAIN [None]
  - FATIGUE [None]
  - HEAD INJURY [None]
  - HEART RATE INCREASED [None]
  - HEART RATE IRREGULAR [None]
  - HYPERHIDROSIS [None]
  - HYPERVENTILATION [None]
  - INSOMNIA [None]
  - NAUSEA [None]
  - NIPPLE PAIN [None]
  - NON-CARDIAC CHEST PAIN [None]
  - SYNCOPE [None]
  - THIRST [None]
  - URINARY INCONTINENCE [None]
  - VOMITING [None]
